FAERS Safety Report 25289993 (Version 1)
Quarter: 2025Q2

REPORT INFORMATION
  Report Type: Spontaneous
  Country: GB (occurrence: GB)
  Receive Date: 20250509
  Receipt Date: 20250509
  Transmission Date: 20250717
  Serious: Yes (Other)
  Sender: ELI LILLY AND COMPANY
  Company Number: None

PATIENT
  Age: 63 Year
  Sex: Female
  Weight: 134 kg

DRUGS (6)
  1. MOUNJARO [Suspect]
     Active Substance: TIRZEPATIDE
     Indication: Weight control
     Route: 065
     Dates: end: 20250428
  2. MOUNJARO [Suspect]
     Active Substance: TIRZEPATIDE
     Route: 065
     Dates: end: 20250428
  3. RAMIPRIL [Concomitant]
     Active Substance: RAMIPRIL
     Indication: Blood pressure measurement
  4. INDAPAMIDE [Concomitant]
     Active Substance: INDAPAMIDE
     Indication: Blood pressure measurement
  5. BISOPROLOL FUMARATE [Concomitant]
     Active Substance: BISOPROLOL FUMARATE
     Indication: Blood pressure measurement
  6. EZETIMIBE [Concomitant]
     Active Substance: EZETIMIBE
     Indication: Blood cholesterol

REACTIONS (7)
  - Vomiting projectile [Not Recovered/Not Resolved]
  - Nervousness [Unknown]
  - Blood pressure increased [Unknown]
  - Heart rate increased [Unknown]
  - Dizziness [Unknown]
  - Asthenia [Unknown]
  - Eructation [Unknown]

NARRATIVE: CASE EVENT DATE: 20250409
